FAERS Safety Report 7338297-0 (Version None)
Quarter: 2011Q1

REPORT INFORMATION
  Report Type: 
  Country: None (occurrence: None)
  Receive Date: 20110308
  Receipt Date: 20110210
  Transmission Date: 20110831
  Serious: No
  Sender: FDA-Public Use
  Company Number: US-B.I. PHARMACEUTICALS,INC./RIDGEFIELD-2011-BP-00437BP

PATIENT
  Sex: Male

DRUGS (13)
  1. CITALOPRAM [Concomitant]
     Dosage: 20 MG
  2. FISH OIL [Concomitant]
  3. SPIRIVA [Suspect]
     Indication: LUNG DISORDER
  4. AMLODIPINE BESYLATE [Concomitant]
  5. CRESTOR [Concomitant]
     Dosage: 10 MG
  6. LANSOPRAZOLE [Concomitant]
     Dosage: 30 MG
  7. METOPROLOL [Concomitant]
     Dosage: 50 MG
  8. ALPRAZOLAM [Concomitant]
  9. CO 10 [Concomitant]
  10. RAMIPRIL [Concomitant]
     Dosage: 5 MG
  11. ALLEGYLOXAPINE [Concomitant]
  12. SPIRIVA [Suspect]
     Indication: CHRONIC OBSTRUCTIVE PULMONARY DISEASE
     Dosage: 18 MCG
     Route: 055
     Dates: start: 20101001
  13. MULTIVITAMIN [Concomitant]

REACTIONS (5)
  - ABDOMINAL PAIN UPPER [None]
  - PAIN [None]
  - INFECTION [None]
  - OROPHARYNGEAL PAIN [None]
  - DRY MOUTH [None]
